FAERS Safety Report 7765167-6 (Version None)
Quarter: 2011Q3

REPORT INFORMATION
  Report Type: 
  Country: None (occurrence: None)
  Receive Date: 20110919
  Receipt Date: 20090721
  Transmission Date: 20111222
  Serious: Yes (Hospitalization)
  Sender: FDA-Public Use
  Company Number: WAES 0811USA03761

PATIENT
  Age: 71 Year
  Sex: Male
  Weight: 52.6173 kg

DRUGS (10)
  1. BLOOD CELLS, RED [Concomitant]
  2. VITAMIN E [Concomitant]
  3. GLUCOTROL [Concomitant]
  4. CYANOCOBALAMIN [Concomitant]
  5. VITAMINS (UNSPECIFIED) [Concomitant]
  6. CAP VORINOSTAT UNK [Suspect]
     Indication: MYELODYSPLASTIC SYNDROME
     Dosage: 600 MG/TID/PO, 200 MG/TID/PO, 600 MG/TID/PO, 200 MG/TID/PO
     Route: 048
     Dates: start: 20081106, end: 20081117
  7. CAP VORINOSTAT UNK [Suspect]
     Indication: MYELODYSPLASTIC SYNDROME
     Dosage: 600 MG/TID/PO, 200 MG/TID/PO, 600 MG/TID/PO, 200 MG/TID/PO
     Route: 048
     Dates: start: 20080925, end: 20081009
  8. CAP VORINOSTAT UNK [Suspect]
     Indication: MYELODYSPLASTIC SYNDROME
     Dosage: 600 MG/TID/PO, 200 MG/TID/PO, 600 MG/TID/PO, 200 MG/TID/PO
     Route: 048
     Dates: start: 20081016, end: 20081030
  9. CAP VORINOSTAT UNK [Suspect]
     Indication: MYELODYSPLASTIC SYNDROME
     Dosage: 600 MG/TID/PO, 200 MG/TID/PO, 600 MG/TID/PO, 200 MG/TID/PO
     Route: 048
     Dates: start: 20080904, end: 20080917
  10. ACTOS [Concomitant]

REACTIONS (12)
  - DYSPNOEA [None]
  - ABDOMINAL PAIN [None]
  - FLANK PAIN [None]
  - WHITE BLOOD CELL COUNT DECREASED [None]
  - HEPATIC HAEMORRHAGE [None]
  - FEELING ABNORMAL [None]
  - PNEUMONIA [None]
  - PLEURAL EFFUSION [None]
  - THROMBOCYTOPENIA [None]
  - PERICARDIAL EFFUSION [None]
  - HAEMATOCRIT DECREASED [None]
  - SPLENIC HAEMORRHAGE [None]
